FAERS Safety Report 17836861 (Version 2)
Quarter: 2020Q2

REPORT INFORMATION
  Report Type: Spontaneous
  Country: US (occurrence: US)
  Receive Date: 20200528
  Receipt Date: 20200619
  Transmission Date: 20200714
  Serious: No
  Sender: FDA-Public Use
  Company Number: US-009507513-2005USA005817

PATIENT
  Age: 31 Year
  Sex: Female

DRUGS (2)
  1. ETONOGESTREL (+) ETHINYL ESTRADIOL [Suspect]
     Active Substance: ETHINYL ESTRADIOL\ETONOGESTREL
     Dosage: UNK
     Route: 067
     Dates: start: 20200429
  2. ETONOGESTREL (+) ETHINYL ESTRADIOL [Suspect]
     Active Substance: ETHINYL ESTRADIOL\ETONOGESTREL
     Dosage: UNK
     Dates: start: 202002

REACTIONS (6)
  - Polymenorrhoea [Unknown]
  - Metrorrhagia [Unknown]
  - Abnormal withdrawal bleeding [Unknown]
  - Menstrual disorder [Unknown]
  - Prescription drug used without a prescription [Unknown]
  - Device expulsion [Unknown]

NARRATIVE: CASE EVENT DATE: 2020
